FAERS Safety Report 10412721 (Version 1)
Quarter: 2014Q3

REPORT INFORMATION
  Report Type: Spontaneous
  Country: US (occurrence: US)
  Receive Date: 20140827
  Receipt Date: 20140827
  Transmission Date: 20150326
  Serious: No
  Sender: FDA-Public Use
  Company Number: US-GILEAD-2014-0112815

PATIENT
  Sex: Male

DRUGS (1)
  1. SOVALDI [Suspect]
     Active Substance: SOFOSBUVIR
     Indication: PRODUCT USED FOR UNKNOWN INDICATION
     Route: 065

REACTIONS (7)
  - Amnesia [Unknown]
  - Weight increased [Unknown]
  - Tongue disorder [Unknown]
  - Unevaluable event [Unknown]
  - Dyspnoea [Unknown]
  - Visual impairment [Unknown]
  - Skin disorder [Unknown]
